FAERS Safety Report 17042543 (Version 2)
Quarter: 2019Q4

REPORT INFORMATION
  Report Type: Spontaneous
  Country: RU (occurrence: RU)
  Receive Date: 20191118
  Receipt Date: 20191122
  Transmission Date: 20200122
  Serious: Yes (Hospitalization)
  Sender: FDA-Public Use
  Company Number: RU-PFIZER INC-2019490625

PATIENT

DRUGS (1)
  1. BOSUTINIB [Suspect]
     Active Substance: BOSUTINIB

REACTIONS (1)
  - Pleurisy [Unknown]
